FAERS Safety Report 9046469 (Version 1)
Quarter: 2013Q1

REPORT INFORMATION
  Report Type: Spontaneous
  Country: US (occurrence: None)
  Receive Date: 20130128
  Receipt Date: 20130128
  Transmission Date: 20140127
  Serious: Yes (Disabling)
  Sender: FDA-Public Use
  Company Number: None

PATIENT
  Age: 59 Year
  Sex: Male
  Weight: 92.99 kg

DRUGS (1)
  1. ATORVASTATIN [Suspect]
     Indication: BLOOD CHOLESTEROL INCREASED
     Dates: start: 20000605, end: 20130105

REACTIONS (8)
  - Muscular weakness [None]
  - Myalgia [None]
  - Depression [None]
  - Lethargy [None]
  - Libido disorder [None]
  - Suicidal ideation [None]
  - Sexual dysfunction [None]
  - Thinking abnormal [None]
